FAERS Safety Report 24402329 (Version 1)
Quarter: 2024Q4

REPORT INFORMATION
  Report Type: Spontaneous
  Country: IN (occurrence: IN)
  Receive Date: 20241007
  Receipt Date: 20241007
  Transmission Date: 20250114
  Serious: Yes (Other)
  Sender: DR REDDYS
  Company Number: IN-RDY-LIT/IND/24/0014383

PATIENT
  Age: 46 Year
  Sex: Male

DRUGS (3)
  1. GLIMEPIRIDE\METFORMIN [Suspect]
     Active Substance: GLIMEPIRIDE\METFORMIN
     Indication: Type 2 diabetes mellitus
     Dosage: BD
     Route: 048
  2. INSULIN NOS [Suspect]
     Active Substance: INSULIN NOS
     Indication: Type 2 diabetes mellitus
  3. Amlodipine 5 mg+Atenolol25 mg [Concomitant]
     Indication: Hypertension

REACTIONS (1)
  - Drug ineffective [Unknown]
